FAERS Safety Report 10874386 (Version 1)
Quarter: 2015Q1

REPORT INFORMATION
  Report Type: Spontaneous
  Country: US (occurrence: US)
  Receive Date: 20150227
  Receipt Date: 20150227
  Transmission Date: 20150721
  Serious: Yes (Death, Life-Threatening, Hospitalization)
  Sender: FDA-Public Use
  Company Number: US-PERRIGO-15US001989

PATIENT
  Age: 7 Year
  Sex: Male

DRUGS (10)
  1. ACETAMINOPHEN 650MG ER 544 [Suspect]
     Active Substance: ACETAMINOPHEN
     Dosage: 15 MG/KG, EVERY 4 HOURS (TOTAL OF 8 DOSES)
     Route: 065
     Dates: start: 201002, end: 201002
  2. CEFTRIAXONE. [Suspect]
     Active Substance: CEFTRIAXONE
     Indication: PRODUCT USED FOR UNKNOWN INDICATION
     Dosage: UNKNOWN, UNKNOWN
     Route: 042
     Dates: start: 201002, end: 201002
  3. MEROPENEM. [Concomitant]
     Active Substance: MEROPENEM
     Indication: PRODUCT USED FOR UNKNOWN INDICATION
     Dosage: UNK
     Route: 065
     Dates: start: 201002, end: 201002
  4. VANCOMYCIN [Concomitant]
     Active Substance: VANCOMYCIN
     Indication: PRODUCT USED FOR UNKNOWN INDICATION
     Dosage: UNK
     Route: 065
     Dates: start: 201002, end: 201002
  5. METRONIDAZOLE. [Concomitant]
     Active Substance: METRONIDAZOLE
     Indication: PRODUCT USED FOR UNKNOWN INDICATION
     Dosage: UNK
     Route: 065
     Dates: start: 201002, end: 201002
  6. ACETAMINOPHEN 650MG ER 544 [Suspect]
     Active Substance: ACETAMINOPHEN
     Indication: PYREXIA
     Dosage: 10 MG/KG, SINGLE
     Route: 065
     Dates: start: 201002, end: 201002
  7. FENRETINIDE [Suspect]
     Active Substance: FENRETINIDE
     Indication: NEUROBLASTOMA
     Dosage: 1110 MG/M^2, DAILY AS CONTINUOUS INFUSION
     Route: 042
     Dates: start: 201002, end: 201002
  8. MONTELUKAST [Concomitant]
     Active Substance: MONTELUKAST SODIUM
  9. ONDANSETRON [Concomitant]
     Active Substance: ONDANSETRON
  10. IBUPROFEN 200 MG 604 [Suspect]
     Active Substance: IBUPROFEN
     Indication: PYREXIA
     Dosage: UNK, TWO DOSES
     Route: 065
     Dates: start: 201002, end: 201002

REACTIONS (37)
  - Epistaxis [Unknown]
  - Encephalitis [Unknown]
  - Skin exfoliation [Unknown]
  - Ascites [Unknown]
  - Abdominal distension [Unknown]
  - Drug interaction [Fatal]
  - Haemorrhage [Unknown]
  - Mucosal haemorrhage [Unknown]
  - Cholestasis [Unknown]
  - Anuria [Unknown]
  - Hepatic necrosis [Unknown]
  - Periportal oedema [Fatal]
  - Hyperbilirubinaemia [Unknown]
  - Blood creatinine increased [Unknown]
  - Enteritis [Unknown]
  - Acute hepatic failure [Fatal]
  - Colitis [Unknown]
  - Eczema [Unknown]
  - Perivascular dermatitis [Unknown]
  - Blood alkaline phosphatase increased [Unknown]
  - Hepatomegaly [Fatal]
  - Aspartate aminotransferase increased [Unknown]
  - Hypoxia [Unknown]
  - Metabolic acidosis [Unknown]
  - Rash macular [Unknown]
  - Atelectasis [Fatal]
  - Alanine aminotransferase increased [Unknown]
  - Intra-abdominal haemorrhage [Unknown]
  - Drug eruption [Unknown]
  - Blood lactate dehydrogenase increased [Unknown]
  - Hypoalbuminaemia [Unknown]
  - Renal failure [Fatal]
  - Disseminated intravascular coagulation [Unknown]
  - Pleural effusion [Fatal]
  - Hypotension [Unknown]
  - Generalised oedema [Unknown]
  - Abdominal pain [Unknown]

NARRATIVE: CASE EVENT DATE: 201002
